FAERS Safety Report 5930140-7 (Version None)
Quarter: 2008Q4

REPORT INFORMATION
  Report Type: 
  Country: None (occurrence: None)
  Receive Date: 20081024
  Receipt Date: 20081014
  Transmission Date: 20090506
  Serious: Yes (Other)
  Sender: FDA-Public Use
  Company Number: CN-PFIZER INC-2008086495

PATIENT
  Age: 4 Year
  Sex: Female
  Weight: 13 kg

DRUGS (2)
  1. ZITHROMAX [Suspect]
     Indication: PYREXIA
     Dosage: DAILY DOSE:125MG-FREQ:EVERY DAY
     Route: 042
     Dates: end: 20080101
  2. ZITHROMAX [Suspect]
     Indication: COUGH

REACTIONS (2)
  - ARTHRALGIA [None]
  - WHEEZING [None]
